FAERS Safety Report 5695466-3 (Version None)
Quarter: 2008Q2

REPORT INFORMATION
  Report Type: 
  Country: None (occurrence: None)
  Receive Date: 20080403
  Receipt Date: 20080324
  Transmission Date: 20081010
  Serious: Yes (Other)
  Sender: FDA-Public Use
  Company Number: 231094J08USA

PATIENT
  Age: 48 Year
  Sex: Female

DRUGS (3)
  1. REBIF [Suspect]
     Indication: MULTIPLE SCLEROSIS
     Dosage: 44 MCG, 3 IN 1 WEEKS, SUBCUTANEOUS
     Route: 058
     Dates: start: 20030307
  2. WELLBUTRIN [Concomitant]
  3. CALCIUM (CALCIUM -SANDOZ   /00009901/) [Concomitant]

REACTIONS (4)
  - BACK PAIN [None]
  - NEPHROLITHIASIS [None]
  - RENAL IMPAIRMENT [None]
  - URETERAL DISORDER [None]
